FAERS Safety Report 4679581-9 (Version None)
Quarter: 2005Q2

REPORT INFORMATION
  Report Type: 
  Country: None (occurrence: None)
  Receive Date: 20050602
  Receipt Date: 20050527
  Transmission Date: 20051028
  Serious: Yes (Hospitalization)
  Sender: FDA-Public Use
  Company Number: AU-BOEHRINGER INGELHEIM PHARMACEUTICALS, INC.-2005-BP-08851AU

PATIENT

DRUGS (1)
  1. MOBIC [Suspect]

REACTIONS (1)
  - HAEMORRHAGE [None]
